FAERS Safety Report 21711588 (Version 1)
Quarter: 2022Q4

REPORT INFORMATION
  Report Type: Spontaneous
  Country: IR (occurrence: IR)
  Receive Date: 20221212
  Receipt Date: 20221212
  Transmission Date: 20230113
  Serious: Yes (Death, Other)
  Sender: FDA-Public Use
  Company Number: None

PATIENT
  Sex: Male
  Weight: 114 kg

DRUGS (4)
  1. METHADONE HYDROCHLORIDE [Suspect]
     Active Substance: METHADONE HYDROCHLORIDE
     Indication: Drug dependence
     Route: 065
  2. HEROIN [Suspect]
     Active Substance: DIAMORPHINE
     Indication: Product used for unknown indication
     Dosage: ABOUT 0.5G PER DAY
  3. COCAINE [Suspect]
     Active Substance: COCAINE
     Indication: Product used for unknown indication
     Route: 065
  4. ALCOHOL [Suspect]
     Active Substance: ALCOHOL
     Indication: Product used for unknown indication
     Route: 065

REACTIONS (13)
  - Myocardial ischaemia [Fatal]
  - Arteriosclerosis [Fatal]
  - Acute myocardial infarction [Fatal]
  - Pulmonary oedema [Fatal]
  - Diffuse alveolar damage [Fatal]
  - Hepatic steatosis [Fatal]
  - Hepatic necrosis [Fatal]
  - Chronic hepatitis [Fatal]
  - Steatohepatitis [Fatal]
  - Congestive cardiomyopathy [Fatal]
  - Left ventricular hypertrophy [Fatal]
  - Substance abuse [Fatal]
  - Drug interaction [Unknown]
